FAERS Safety Report 21131623 (Version 8)
Quarter: 2023Q1

REPORT INFORMATION
  Report Type: Spontaneous
  Country: IN (occurrence: IN)
  Receive Date: 20220726
  Receipt Date: 20230329
  Transmission Date: 20230417
  Serious: Yes (Other)
  Sender: FDA-Public Use
  Company Number: IN-PFIZER INC-202101761160

PATIENT
  Age: 65 Year
  Sex: Female

DRUGS (11)
  1. PALBOCICLIB [Suspect]
     Active Substance: PALBOCICLIB
     Indication: Breast cancer metastatic
     Dosage: 125 MG, 1X/DAY
     Route: 048
     Dates: start: 20210219
  2. PALBOCICLIB [Suspect]
     Active Substance: PALBOCICLIB
     Dosage: 100 MG, 1X/DAY, 21/28 DAYS
     Route: 048
  3. PALBOCICLIB [Suspect]
     Active Substance: PALBOCICLIB
     Dosage: UNK
  4. ZOLEDRONIC ACID [Concomitant]
     Active Substance: ZOLEDRONIC ACID
     Dosage: 4 MG IN 100ML NS OVER 30 MIN
     Dates: start: 202102
  5. FEMARA [Concomitant]
     Active Substance: LETROZOLE
     Dosage: 1 DF (0-0-1)
  6. CCM [Concomitant]
     Dosage: 2 DF, 2X/DAY (1-0-1)
  7. CCM [Concomitant]
     Dosage: UNK, 1X/DAY (0-1-0)
  8. LETROZOLE [Concomitant]
     Active Substance: LETROZOLE
     Dosage: 2.5 MG, 1X/DAY (0-1-0)
     Dates: start: 202102
  9. URSOCOL [Concomitant]
     Dosage: 300 MG, 2X/DAY (1-0-1 FOR 20 DAYS)
  10. ULTRACET [Concomitant]
     Active Substance: ACETAMINOPHEN\TRAMADOL HYDROCHLORIDE
     Indication: Pain
     Dosage: UNK
  11. NEUKINE [Concomitant]
     Dosage: 300 MEG, 1X/DAY FOR 2 DAYS

REACTIONS (18)
  - Oxygen saturation decreased [Unknown]
  - Blood pressure diastolic decreased [Unknown]
  - Heart rate increased [Unknown]
  - Hypertension [Unknown]
  - Blood pressure systolic increased [Not Recovered/Not Resolved]
  - Abdominal pain [Unknown]
  - Full blood count abnormal [Unknown]
  - Haemoglobin abnormal [Unknown]
  - White blood cell count abnormal [Unknown]
  - Weight increased [Unknown]
  - Eastern Cooperative Oncology Group performance status worsened [Unknown]
  - Platelet count abnormal [Unknown]
  - Alopecia [Unknown]
  - Pyrexia [Unknown]
  - Fatigue [Unknown]
  - Blood pressure abnormal [Unknown]
  - Back pain [Unknown]
  - Pain [Unknown]

NARRATIVE: CASE EVENT DATE: 20220312
